FAERS Safety Report 5746642-2 (Version None)
Quarter: 2008Q2

REPORT INFORMATION
  Report Type: 
  Country: None (occurrence: None)
  Receive Date: 20080522
  Receipt Date: 20080513
  Transmission Date: 20081010
  Serious: Yes (Other)
  Sender: FDA-Public Use
  Company Number: FR-JNJFOC-20080400584

PATIENT
  Age: 28 Year
  Sex: Female
  Weight: 60 kg

DRUGS (7)
  1. REMICADE [Suspect]
     Dosage: 300 MG, OVER 120 MINUTES
     Route: 042
  2. REMICADE [Suspect]
     Dosage: 300 MG
     Route: 042
  3. REMICADE [Suspect]
     Dosage: 300 MG
     Route: 042
  4. REMICADE [Suspect]
     Dosage: 300 MG
     Route: 042
  5. REMICADE [Suspect]
     Indication: CROHN'S DISEASE
     Dosage: 300 MG
     Route: 042
  6. IMUREL [Concomitant]
     Indication: DRUG USE FOR UNKNOWN INDICATION
  7. PREDNISOLONE [Concomitant]
     Indication: PREMEDICATION
     Route: 042

REACTIONS (7)
  - BRONCHOSPASM [None]
  - COUGH [None]
  - DRUG HYPERSENSITIVITY [None]
  - INFUSION RELATED REACTION [None]
  - LARYNGEAL DYSPNOEA [None]
  - MALAISE [None]
  - PALPITATIONS [None]
